APPROVED DRUG PRODUCT: DV
Active Ingredient: DIENESTROL
Strength: 0.7MG
Dosage Form/Route: SUPPOSITORY;VAGINAL
Application: A083517 | Product #001
Applicant: SANOFI AVENTIS US LLC
Approved: Approved Prior to Jan 1, 1982 | RLD: No | RS: No | Type: DISCN